FAERS Safety Report 19364442 (Version 1)
Quarter: 2021Q2

REPORT INFORMATION
  Report Type: Spontaneous
  Country: US (occurrence: US)
  Receive Date: 20210602
  Receipt Date: 20210602
  Transmission Date: 20210717
  Serious: Yes (Other)
  Sender: FDA-Public Use
  Company Number: None

PATIENT
  Age: 74 Year
  Sex: Female
  Weight: 50.1 kg

DRUGS (1)
  1. HYDROMORPHONE TABLET AND INJECTION [Suspect]
     Active Substance: HYDROMORPHONE
     Indication: PAIN
     Route: 048
     Dates: start: 20210525, end: 20210601

REACTIONS (2)
  - Lethargy [None]
  - Respiratory depression [None]

NARRATIVE: CASE EVENT DATE: 20210601
